FAERS Safety Report 7033259-5 (Version None)
Quarter: 2010Q4

REPORT INFORMATION
  Report Type: 
  Country: None (occurrence: None)
  Receive Date: 20101007
  Receipt Date: 20101001
  Transmission Date: 20110411
  Serious: Yes (Hospitalization)
  Sender: FDA-Public Use
  Company Number: A0836058A

PATIENT
  Age: 40 Year
  Sex: Female

DRUGS (5)
  1. AVANDIA [Suspect]
     Indication: DIABETES MELLITUS
     Dosage: 8MG PER DAY
     Route: 048
     Dates: start: 20030101, end: 20090101
  2. LOTREL [Concomitant]
  3. LIPITOR [Concomitant]
  4. ESTRADIOL [Concomitant]
  5. OXYCONTIN [Concomitant]
     Indication: ANXIETY

REACTIONS (5)
  - CEREBROVASCULAR ACCIDENT [None]
  - FRACTURE [None]
  - MENTAL STATUS CHANGES [None]
  - OEDEMA [None]
  - STRESS [None]
